FAERS Safety Report 20793811 (Version 1)
Quarter: 2022Q2

REPORT INFORMATION
  Report Type: Spontaneous
  Country: CA (occurrence: None)
  Receive Date: 20220506
  Receipt Date: 20220506
  Transmission Date: 20220721
  Serious: Yes (Other)
  Sender: FDA-Public Use
  Company Number: CA-ROCHE-3090310

PATIENT
  Age: 32 Year
  Sex: Female
  Weight: 110 kg

DRUGS (3)
  1. SOMATROPIN [Suspect]
     Active Substance: SOMATROPIN
     Indication: Growth hormone deficiency
     Route: 058
  2. METHADONE [Concomitant]
     Active Substance: METHADONE HYDROCHLORIDE
     Route: 048
  3. SYNTHROID [Concomitant]
     Active Substance: LEVOTHYROXINE SODIUM
     Indication: Hypothyroidism
     Route: 048

REACTIONS (10)
  - COVID-19 [Recovered/Resolved]
  - Menstruation normal [Recovered/Resolved]
  - Therapeutic response unexpected [Recovered/Resolved]
  - Energy increased [Recovered/Resolved]
  - Weight decreased [Recovered/Resolved]
  - Device leakage [Unknown]
  - Device use error [Unknown]
  - Incorrect dose administered [Unknown]
  - Product dose omission issue [Unknown]
  - Product prescribing error [Unknown]
